FAERS Safety Report 20477459 (Version 2)
Quarter: 2025Q3

REPORT INFORMATION
  Report Type: Spontaneous
  Country: EU (occurrence: EU)
  Receive Date: 20220216
  Receipt Date: 20250929
  Transmission Date: 20251020
  Serious: No
  Sender: BIOGEN
  Company Number: EU-BIOGEN-2022BI01096184

PATIENT
  Age: 0 Year
  Sex: Female

DRUGS (9)
  1. TYSABRI [Suspect]
     Active Substance: NATALIZUMAB
     Indication: Maternal exposure timing unspecified
     Route: 050
     Dates: start: 201910
  2. TYSABRI [Suspect]
     Active Substance: NATALIZUMAB
     Route: 050
  3. COPAXONE [Suspect]
     Active Substance: GLATIRAMER ACETATE
     Indication: Maternal exposure timing unspecified
     Route: 050
     Dates: start: 20200518
  4. COPAXONE [Suspect]
     Active Substance: GLATIRAMER ACETATE
     Route: 050
  5. Velnatal plus [Concomitant]
     Indication: Nutritional supplementation
     Route: 050
     Dates: start: 202004, end: 202109
  6. Nerisona salbe [Concomitant]
     Indication: Eczema
     Dosage: IN THE MORNING
     Route: 050
     Dates: start: 20200701, end: 202008
  7. Magnonorm genericon [Concomitant]
     Indication: Mineral supplementation
     Dosage: 365 MILLIGRAM DAILY
     Route: 050
     Dates: start: 202004, end: 202006
  8. MAGNESIUM [Concomitant]
     Active Substance: MAGNESIUM
     Indication: Mineral supplementation
     Route: 050
     Dates: start: 202006, end: 202109
  9. Maxi-kalz [Concomitant]
     Indication: Mineral supplementation
     Route: 050
     Dates: start: 202004, end: 202112

REACTIONS (1)
  - Maternal exposure during breast feeding [Unknown]

NARRATIVE: CASE EVENT DATE: 20201215
